FAERS Safety Report 9399194 (Version 3)
Quarter: 2013Q4

REPORT INFORMATION
  Report Type: Spontaneous
  Country: GB (occurrence: None)
  Receive Date: 20130710
  Receipt Date: 20131211
  Transmission Date: 20140711
  Serious: Yes (Hospitalization)
  Sender: FDA-Public Use
  Company Number: AUR-APL-2013-05693

PATIENT
  Age: 64 Year
  Sex: Female
  Weight: 62.59 kg

DRUGS (1)
  1. ALENDRONIC ACID [Suspect]
     Indication: OSTEOPOROSIS
     Route: 048
     Dates: start: 20130110, end: 20130330

REACTIONS (5)
  - Eyelid oedema [None]
  - Eye pain [None]
  - Cataract [None]
  - Eye swelling [None]
  - Visual acuity reduced [None]
